FAERS Safety Report 18820320 (Version 2)
Quarter: 2021Q1

REPORT INFORMATION
  Report Type: Report from Study
  Country: US (occurrence: US)
  Receive Date: 20210202
  Receipt Date: 20210320
  Transmission Date: 20210419
  Serious: No
  Sender: FDA-Public Use
  Company Number: NVSC2021US016654

PATIENT
  Sex: Female

DRUGS (1)
  1. COSENTYX [Suspect]
     Active Substance: SECUKINUMAB
     Indication: PSORIASIS
     Dosage: 300 MG, QMO (BENEATH THE SKIN USUALLY VIA INJECTION)
     Route: 058
     Dates: start: 2018

REACTIONS (2)
  - Pruritus [Unknown]
  - Weight decreased [Unknown]
